FAERS Safety Report 24041470 (Version 1)
Quarter: 2024Q3

REPORT INFORMATION
  Report Type: Spontaneous
  Country: US (occurrence: US)
  Receive Date: 20240702
  Receipt Date: 20240702
  Transmission Date: 20241017
  Serious: No
  Sender: PFIZER
  Company Number: US-PFIZER INC-202400203299

PATIENT
  Age: 73 Year
  Sex: Female
  Weight: 70.76 kg

DRUGS (1)
  1. AROMASIN [Suspect]
     Active Substance: EXEMESTANE
     Indication: Breast cancer female
     Dosage: 25 MG

REACTIONS (4)
  - Rosacea [Unknown]
  - Arthralgia [Unknown]
  - Headache [Unknown]
  - Cough [Unknown]
